FAERS Safety Report 4543973-9 (Version None)
Quarter: 2005Q1

REPORT INFORMATION
  Report Type: 
  Country: None (occurrence: None)
  Receive Date: 20050103
  Receipt Date: 20040319
  Transmission Date: 20050727
  Serious: Yes (Hospitalization)
  Sender: FDA-Public Use
  Company Number: GXKR2004DE00529

PATIENT
  Age: 80 Year
  Sex: Male
  Weight: 66 kg

DRUGS (8)
  1. ALLOPURINOL  (NGX) (ALLOPURINOL) TABLET, 100MG [Suspect]
     Indication: HYPERURICAEMIA
     Dosage: 100 MG, QD, ORAL
     Route: 048
  2. AQUAPHOR TABLET (XIPAMIDE) TABLET, 20 [Suspect]
     Indication: HYPERTENSION
     Dosage: 10 MG, QD, ORAL
     Route: 048
  3. HYDROCHLOROTHIAZIDE (HCT-BETA) (HYDROCHLOROTHIAZIDE) TABLET, 25 MG [Suspect]
     Indication: HYPERTENSION
     Dosage: 12.5 MG, QD, ORAL
     Route: 048
     Dates: end: 20030702
  4. ACETILSALYCILIC ACID (ASS) (ACETILSALYCILIC ACID) [Suspect]
     Indication: CORONARY ARTERY DISEASE
     Dosage: 100 MG, QD
     Dates: start: 19980101
  5. TOREM (TORASEMIDE) TABLET, 10 [Suspect]
     Indication: HYPERTENSION
  6. ACTRAPHANE HM [Concomitant]
  7. DIGITOXIN TAB [Concomitant]
  8. PENTALONG [Concomitant]

REACTIONS (11)
  - ANAEMIA [None]
  - BONE MARROW DEPRESSION [None]
  - BRONCHITIS CHRONIC [None]
  - CARDIAC FAILURE [None]
  - DILATATION VENTRICULAR [None]
  - DYSPNOEA [None]
  - GASTROINTESTINAL HAEMORRHAGE [None]
  - HAEMOPTYSIS [None]
  - OEDEMA PERIPHERAL [None]
  - PULMONARY CONGESTION [None]
  - VENTRICULAR HYPERTROPHY [None]
